FAERS Safety Report 9070401 (Version 1)
Quarter: 2013Q1

REPORT INFORMATION
  Report Type: Report from Study
  Country: US (occurrence: US)
  Receive Date: 20130129
  Receipt Date: 20130129
  Transmission Date: 20140127
  Serious: No
  Sender: FDA-Public Use
  Company Number: US-ABBOTT-12P-163-0921279-00

PATIENT
  Sex: Female
  Weight: 50.85 kg

DRUGS (6)
  1. HUMIRA 40 MG/0.8 ML PEN [Suspect]
     Indication: ANKYLOSING SPONDYLITIS
     Dates: start: 201110, end: 20120229
  2. ALEVE [Concomitant]
     Indication: TENDONITIS
  3. ALEVE [Concomitant]
     Indication: BACK PAIN
  4. SIMPONI [Concomitant]
     Indication: ANKYLOSING SPONDYLITIS
  5. CALCIUM WITH VITAMIN D [Concomitant]
     Indication: SUPPLEMENTATION THERAPY
  6. GABAPENTIN [Concomitant]
     Indication: PAIN IN EXTREMITY
     Dosage: AT BEDTIME

REACTIONS (4)
  - Musculoskeletal stiffness [Not Recovered/Not Resolved]
  - Gait disturbance [Not Recovered/Not Resolved]
  - Drug ineffective [Not Recovered/Not Resolved]
  - Pain [Not Recovered/Not Resolved]
